FAERS Safety Report 14833227 (Version 3)
Quarter: 2018Q3

REPORT INFORMATION
  Report Type: Report from Study
  Country: US (occurrence: US)
  Receive Date: 20180501
  Receipt Date: 20180829
  Transmission Date: 20181010
  Serious: Yes (Hospitalization, Other)
  Sender: FDA-Public Use
  Company Number: US-BAYER-2018-078776

PATIENT
  Age: 59 Year
  Sex: Female
  Weight: 75.28 kg

DRUGS (12)
  1. CORGARD [Concomitant]
     Active Substance: NADOLOL
     Dosage: DAILY DOSE 20 MG
     Route: 048
  2. COREG [Concomitant]
     Active Substance: CARVEDILOL
  3. LAXATIVE [Concomitant]
     Active Substance: UNSPECIFIED INGREDIENT
     Dosage: 20 MG (TAKE 4 TABLETS AT 9 PM DAY BEFORE PROCEDURE)
  4. LASIX [Concomitant]
     Active Substance: FUROSEMIDE
     Dosage: DAILY DOSE 20 MG FOR 30 DAYS
     Route: 048
  5. VIREAD [Concomitant]
     Active Substance: TENOFOVIR DISOPROXIL FUMARATE
     Dosage: DAILY DOSE 300 MG
     Route: 048
  6. ROXICET [Concomitant]
     Active Substance: ACETAMINOPHEN\OXYCODONE HYDROCHLORIDE
     Indication: PAIN
     Dosage: TAKE BY MOUTH EVERY  4 HOURS AS NEEDED
     Route: 048
  7. NEXAVAR [Suspect]
     Active Substance: SORAFENIB
     Indication: HEPATOCELLULAR CARCINOMA
     Dosage: 400 MG, BID
     Route: 048
     Dates: start: 20180320, end: 20180420
  8. ALDACTONE A [Concomitant]
     Active Substance: SPIRONOLACTONE
     Dosage: DAILY DOSE 50 MG
     Route: 048
  9. PRILOSEC [Concomitant]
     Active Substance: OMEPRAZOLE MAGNESIUM
     Dosage: 20 MG EVERY MORNING BEFORE BREAKFAST
     Route: 048
  10. AMARYL [Concomitant]
     Active Substance: GLIMEPIRIDE
     Dosage: 1 MG, BID
     Route: 048
  11. ZOFRAN [Concomitant]
     Active Substance: ONDANSETRON HYDROCHLORIDE
     Indication: NAUSEA
     Dosage: 4 MG, TID AS NEEDED
     Route: 048
  12. LACTULOSE. [Concomitant]
     Active Substance: LACTULOSE
     Dosage: 15 ML, BID (TO GOAL OF 3 BOWEL MOVEMENTS PER DAY)
     Route: 048

REACTIONS (26)
  - Hypotension [Recovering/Resolving]
  - Fatigue [Not Recovered/Not Resolved]
  - Nausea [None]
  - Fatigue [Recovering/Resolving]
  - Dyspnoea exertional [None]
  - Drug intolerance [None]
  - Pleural effusion [None]
  - Urinary tract infection [Recovering/Resolving]
  - Intra-abdominal fluid collection [Recovering/Resolving]
  - Vaginal haemorrhage [Recovering/Resolving]
  - Headache [None]
  - Dyspnoea [Recovering/Resolving]
  - Atelectasis [None]
  - Vomiting [None]
  - Intra-abdominal fluid collection [None]
  - Ammonia increased [Recovering/Resolving]
  - Ascites [None]
  - Asthenia [Not Recovered/Not Resolved]
  - Chest pain [None]
  - Decreased appetite [None]
  - Abdominal discomfort [None]
  - Diarrhoea [Recovering/Resolving]
  - Feeling cold [None]
  - Hypophagia [None]
  - Confusional state [Recovering/Resolving]
  - Vomiting [None]

NARRATIVE: CASE EVENT DATE: 2018
